FAERS Safety Report 4593950-7 (Version None)
Quarter: 2005Q1

REPORT INFORMATION
  Report Type: 
  Country: None (occurrence: None)
  Receive Date: 20050222
  Receipt Date: 20050204
  Transmission Date: 20050727
  Serious: Yes (Hospitalization, Other)
  Sender: FDA-Public Use
  Company Number: 2013342-2005-001

PATIENT
  Age: 32 Year
  Sex: Female

DRUGS (1)
  1. LEUKOTRAP RC-PL SYSTEM [Suspect]

REACTIONS (6)
  - DYSPNOEA [None]
  - HYPOTENSION [None]
  - OXYGEN SATURATION DECREASED [None]
  - PYREXIA [None]
  - TACHYCARDIA [None]
  - TRANSFUSION REACTION [None]
